FAERS Safety Report 7036416-7 (Version None)
Quarter: 2010Q4

REPORT INFORMATION
  Report Type: 
  Country: None (occurrence: None)
  Receive Date: 20101010
  Receipt Date: 20101005
  Transmission Date: 20110411
  Serious: Yes (Death, Other)
  Sender: FDA-Public Use
  Company Number: PHHY2010MX30053

PATIENT
  Sex: Female

DRUGS (1)
  1. ZOMETA [Suspect]
     Indication: NEOPLASM MALIGNANT
     Dosage: 4 MG/5 ML , QMO
     Route: 042
     Dates: start: 20080801, end: 20090930

REACTIONS (6)
  - BREAST CANCER [None]
  - GAIT DISTURBANCE [None]
  - MALIGNANT NEOPLASM PROGRESSION [None]
  - METASTASES TO SPINE [None]
  - RESPIRATORY ARREST [None]
  - SPINAL DISORDER [None]
